FAERS Safety Report 6371734-7 (Version None)
Quarter: 2009Q3

REPORT INFORMATION
  Report Type: 
  Country: None (occurrence: None)
  Receive Date: 20090923
  Receipt Date: 20090909
  Transmission Date: 20100115
  Serious: Yes (Other)
  Sender: FDA-Public Use
  Company Number: US-AVENTIS-200918003US

PATIENT
  Age: 62 Year
  Sex: Male

DRUGS (4)
  1. LOVENOX [Suspect]
     Dosage: DOSE: UNK
  2. PLAVIX [Suspect]
     Dosage: DOSE: UNK
  3. ASPIRIN [Suspect]
     Dosage: DOSE: UNK
  4. INTEGRILIN [Suspect]
     Dosage: DOSE: UNK

REACTIONS (3)
  - BLOOD CREATININE INCREASED [None]
  - HAEMORRHAGE INTRACRANIAL [None]
  - RENAL IMPAIRMENT [None]
